FAERS Safety Report 7092741-5 (Version None)
Quarter: 2010Q4

REPORT INFORMATION
  Report Type: 
  Country: None (occurrence: None)
  Receive Date: 20101110
  Receipt Date: 20090909
  Transmission Date: 20110411
  Serious: Yes (Other)
  Sender: FDA-Public Use
  Company Number: US-KINGPHARMUSA00001-K200801387

PATIENT
  Sex: Female

DRUGS (1)
  1. THROMBIN-JMI [Suspect]
     Indication: SURGERY
     Dosage: UNK
     Dates: start: 20060101, end: 20060101

REACTIONS (3)
  - ACTIVATED PARTIAL THROMBOPLASTIN TIME PROLONGED [None]
  - FACTOR V DEFICIENCY [None]
  - PROTHROMBIN TIME PROLONGED [None]
